FAERS Safety Report 9895386 (Version 1)
Quarter: 2014Q1

REPORT INFORMATION
  Report Type: Spontaneous
  Country: US (occurrence: US)
  Receive Date: 20140213
  Receipt Date: 20140213
  Transmission Date: 20141002
  Serious: No
  Sender: FDA-Public Use
  Company Number: US-BRISTOL-MYERS SQUIBB COMPANY-17278110

PATIENT
  Age: 44 Year
  Sex: Male

DRUGS (8)
  1. ABATACEPT SUBQ INJECTION 125MG/ML [Suspect]
     Dosage: 1DF:125MG/1ML
     Route: 058
  2. METHOTREXATE [Concomitant]
     Dosage: TAB
  3. TRAMADOL HCL [Concomitant]
     Dosage: TABS
  4. DESONIDE [Concomitant]
  5. ALEVE [Concomitant]
     Dosage: 1DF:ALEVE-D TAB, 120-220
  6. OSTEO BI-FLEX [Concomitant]
     Dosage: 1DF:250-200 DOSE NOT GIVEN, TABS
  7. FOLIC ACID [Concomitant]
     Dosage: TABS
  8. VALACYCLOVIR [Concomitant]
     Dosage: TABS

REACTIONS (1)
  - Dyspepsia [Unknown]
